FAERS Safety Report 5300253-1 (Version None)
Quarter: 2007Q2

REPORT INFORMATION
  Report Type: 
  Country: None (occurrence: None)
  Receive Date: 20070411
  Receipt Date: 20070405
  Transmission Date: 20071010
  Serious: No
  Sender: FDA-Public Use
  Company Number: TAP2007Q00467

PATIENT
  Age: 51 Year
  Sex: Female

DRUGS (2)
  1. PREVACID [Suspect]
     Indication: GASTROOESOPHAGEAL REFLUX DISEASE
     Dosage: 30 MG, 1 IN 1 D, ORAL
     Route: 048
     Dates: start: 20070219
  2. ATIVAN [Concomitant]

REACTIONS (5)
  - DRY EYE [None]
  - EYE INFECTION [None]
  - EYE PAIN [None]
  - SINUSITIS [None]
  - VISION BLURRED [None]
